FAERS Safety Report 16002093 (Version 1)
Quarter: 2019Q1

REPORT INFORMATION
  Report Type: Spontaneous
  Country: PT (occurrence: PT)
  Receive Date: 20190225
  Receipt Date: 20190225
  Transmission Date: 20190418
  Serious: Yes (Death, Other)
  Sender: FDA-Public Use
  Company Number: PT-GILEAD-2019-0392461

PATIENT
  Age: 60 Year
  Sex: Male

DRUGS (4)
  1. HARVONI [Suspect]
     Active Substance: LEDIPASVIR\SOFOSBUVIR
     Indication: HEPATITIS C
     Dosage: UNK
     Route: 065
  2. TRUVADA [Suspect]
     Active Substance: EMTRICITABINE\TENOFOVIR DISOPROXIL FUMARATE
     Indication: HIV TEST POSITIVE
     Route: 065
  3. RIBAVIRIN. [Suspect]
     Active Substance: RIBAVIRIN
     Indication: HEPATITIS C
     Dosage: UNK
     Route: 048
  4. ATAZANAVIR;RITONAVIR [Concomitant]
     Active Substance: ATAZANAVIR\RITONAVIR
     Indication: HIV TEST POSITIVE
     Dosage: UNK

REACTIONS (2)
  - Sepsis [Fatal]
  - Diabetic metabolic decompensation [Fatal]
